FAERS Safety Report 24323995 (Version 1)
Quarter: 2024Q3

REPORT INFORMATION
  Report Type: Spontaneous
  Country: US (occurrence: US)
  Receive Date: 20240916
  Receipt Date: 20240916
  Transmission Date: 20241017
  Serious: No
  Sender: BAYER
  Company Number: US-BAYER-2024A131772

PATIENT
  Age: 42 Year
  Sex: Female

DRUGS (1)
  1. MIRENA [Suspect]
     Active Substance: LEVONORGESTREL
     Dosage: 20?G/DAY
     Route: 015
     Dates: start: 20240826

REACTIONS (4)
  - Tongue discomfort [None]
  - Oral discomfort [None]
  - Ageusia [None]
  - Hypoaesthesia oral [None]

NARRATIVE: CASE EVENT DATE: 20240830
